FAERS Safety Report 20025528 (Version 6)
Quarter: 2025Q1

REPORT INFORMATION
  Report Type: Report from Study
  Country: TH (occurrence: TH)
  Receive Date: 20211102
  Receipt Date: 20250110
  Transmission Date: 20250409
  Serious: Yes (Death, Hospitalization)
  Sender: NOVARTIS
  Company Number: TH-NOVARTISPH-NVSC2021TH244633

PATIENT
  Sex: Male

DRUGS (75)
  1. ELTROMBOPAG OLAMINE [Suspect]
     Active Substance: ELTROMBOPAG OLAMINE
     Indication: Aplastic anaemia
     Dosage: 25 MG, QD (3 TABLETS BEFORE BREAKFAST)
     Route: 048
     Dates: start: 20210927
  2. ELTROMBOPAG OLAMINE [Suspect]
     Active Substance: ELTROMBOPAG OLAMINE
     Dosage: 25 MG, QD (4 TABLETS BEFORE BREAKFAST)
     Route: 048
  3. ELTROMBOPAG OLAMINE [Suspect]
     Active Substance: ELTROMBOPAG OLAMINE
     Dosage: 25 MG, QD (5 TABLETS BEFORE BREAKFAST)
     Route: 048
  4. CYCLOSPORINE [Suspect]
     Active Substance: CYCLOSPORINE
     Indication: Product used for unknown indication
     Dosage: 1 DOSAGE FORM, Q12H
     Route: 048
  5. LIORESAL [Suspect]
     Active Substance: BACLOFEN
     Indication: Product used for unknown indication
     Dosage: 1 DOSAGE FORM, BID (TWICE DAILY AFTER BREAKFAST AND DINNER)
     Route: 048
  6. BROMOCRIPTINE [Suspect]
     Active Substance: BROMOCRIPTINE
     Indication: Product used for unknown indication
     Dosage: 2.5 MG, QD (1 TABLET AFTER BREAKFAST)
     Route: 048
  7. GABAPENTIN [Suspect]
     Active Substance: GABAPENTIN
     Indication: Product used for unknown indication
     Dosage: 300 MG (1 TABLET), BID (AT THE MORNING AND BEDTIME)
     Route: 048
  8. GABAPENTIN [Suspect]
     Active Substance: GABAPENTIN
     Dosage: 1 DOSAGE FORM, QD (AFTER BREAKFAST AND 2 TABLETS AT BEDTIME)
     Route: 048
  9. PREDNISOLONE [Concomitant]
     Active Substance: PREDNISOLONE
     Indication: Product used for unknown indication
     Dosage: 5 MG (3 TABLETS), QD (AFTER BREAKFAST)
     Route: 048
     Dates: start: 20211024
  10. PREDNISOLONE [Concomitant]
     Active Substance: PREDNISOLONE
     Dosage: 3 DOSAGE FORM, QD (AFTER BREAKFAST TAKE AFTER MEAL IMMEDIATELY AND FOLLOW BY A LOT OF WATER DRINKING
     Route: 048
     Dates: start: 20211122
  11. PREDNISOLONE [Concomitant]
     Active Substance: PREDNISOLONE
     Dosage: 2 DOSAGE FORM, QD (AFTER BREAKFAST)
     Route: 048
     Dates: start: 20211129
  12. PREDNISOLONE [Concomitant]
     Active Substance: PREDNISOLONE
     Dosage: 2 DOSAGE FORM, QD (AFTER BREAKFAST, TAKE AFTER MEAL IMMEDIATELY AND FOLLOW BY A LOT OF WATER DRINKIN
     Route: 048
     Dates: start: 20211214
  13. PREDNISOLONE [Concomitant]
     Active Substance: PREDNISOLONE
     Dosage: 2 DOSAGE FORM, QD (AFTER BREAKFAST, TAKE AFTER MEAL IMMEDIATELY AND FOLLOW BY A LOT OF WATER DRINKIN
     Route: 048
     Dates: start: 20211227
  14. PREDNISOLONE [Concomitant]
     Active Substance: PREDNISOLONE
     Dosage: 2 DOSAGE FORM, QD (AFTER BREAKFAST, TAKE AFTER MEAL IMMEDIATELY AND FOLLOW BY A LOT OF WATER DRINKIN
     Route: 048
     Dates: start: 20211230
  15. LACTULOSE [Concomitant]
     Active Substance: LACTULOSE
     Indication: Constipation
     Dosage: 30 CC, QD (ONCE DAILY AT BEDTIME)
     Route: 048
     Dates: start: 20211024
  16. Mydocalm [Concomitant]
     Indication: Product used for unknown indication
     Dosage: 50 MG (1 TABLET), TID (THREE TIMES A DAY AFTER BREAKFAST LUNCH AND DINNER)
     Route: 048
  17. TRAMADOL [Concomitant]
     Active Substance: TRAMADOL
     Indication: Product used for unknown indication
     Dosage: 50 MG (1 CAPSULE), TID (THREE TIMES A DAY AFTER BREAKFAST LUNCH AND DINNER)
     Route: 048
     Dates: start: 20211024
  18. TRAMADOL [Concomitant]
     Active Substance: TRAMADOL
     Dosage: 1 DOSAGE FORM, Q6H (ORALLY TAKE 1 TABLET EVERY 6 HOURS WHEN EXPERIENCING SYMPTOM)
     Route: 048
     Dates: start: 20211122
  19. TRAMADOL [Concomitant]
     Active Substance: TRAMADOL
     Dosage: UNK, Q6H (EVERY 6 HOURS WHEN EXPERIENCING SYMPTOM)
     Route: 065
     Dates: start: 20211120
  20. TRAMADOL [Concomitant]
     Active Substance: TRAMADOL
     Dosage: UNK, Q6H (EVERY 6 HOURS WHEN EXPERIENCING SYMPTOM)
     Route: 065
     Dates: start: 20211119
  21. TRAMADOL [Concomitant]
     Active Substance: TRAMADOL
     Dosage: 1 DOSAGE FORM, Q6H (ORALLY TAKE 1 TABLET EVERY 6 HOURS WHEN EXPERIENCING SYMPTOM)
     Route: 048
     Dates: start: 20211129
  22. TRAMADOL [Concomitant]
     Active Substance: TRAMADOL
     Dosage: 1 DOSAGE FORM, QD (AFTER BREAKFAST AND DINNER, MEDICATION MAKES DROWSINESS)
     Route: 048
     Dates: start: 20211230
  23. COTRIMOXAZOLE [Concomitant]
     Active Substance: SULFAMETHOXAZOLE\TRIMETHOPRIM
     Indication: Prophylaxis
     Dosage: 2 DF (80/400 MG), QD (ONCE DAILY AFTER BREAKFAST ON MONDAY AND THURSDAY)
     Route: 048
     Dates: start: 20211024
  24. COTRIMOXAZOLE [Concomitant]
     Active Substance: SULFAMETHOXAZOLE\TRIMETHOPRIM
     Dosage: 2 DOSAGE FORM, QD (AFTER BREAKFAST ONLY ON MONDAYS, THURSDAYS)
     Route: 048
     Dates: start: 20211122
  25. COTRIMOXAZOLE [Concomitant]
     Active Substance: SULFAMETHOXAZOLE\TRIMETHOPRIM
     Dosage: 2 DOSAGE FORM, QD (AFTER BREAKFAST ONLY ON MONDAYS, THURSDAYS)
     Route: 048
     Dates: start: 20211129
  26. COTRIMOXAZOLE [Concomitant]
     Active Substance: SULFAMETHOXAZOLE\TRIMETHOPRIM
     Dosage: 2 DOSAGE FORM, QD (AFTER BREAKFAST ONLY ON MONDAYS, THURSDAYS, TAKE UNTIL FINISH FOR PREVENTING DRUG
     Route: 048
     Dates: start: 20211214
  27. COTRIMOXAZOLE [Concomitant]
     Active Substance: SULFAMETHOXAZOLE\TRIMETHOPRIM
     Dosage: 2 DOSAGE FORM, QD (AFTER BREAKFAST ONLY ON MONDAYS, THURSDAYS)
     Route: 048
     Dates: start: 20211227
  28. COTRIMOXAZOLE [Concomitant]
     Active Substance: SULFAMETHOXAZOLE\TRIMETHOPRIM
     Dosage: 2 DOSAGE FORM, QD (AFTER BREAKFAST ONLY ON MONDAYS, THURSDAYS, TAKE UNTIL FINISH FOR PREVENTING DRUG
     Route: 065
     Dates: start: 20211230
  29. ACYCLOVIR [Concomitant]
     Active Substance: ACYCLOVIR
     Indication: Product used for unknown indication
     Dosage: 400 MG (1 TABLET), BID (TWICE DAILY AFTER BREAKFAST AND DINNER ON MONDAY WEDNESDAY AND FRIDAY)
     Route: 048
     Dates: start: 20211024
  30. ACYCLOVIR [Concomitant]
     Active Substance: ACYCLOVIR
     Dosage: 1 DOSAGE FORM, TID (AFTER BREAKFAST, LUNCH, AND DINNER ONLY ON MONDAYS, WEDNESDAYS, AND FRIDAY)
     Route: 048
     Dates: start: 20211122
  31. ACYCLOVIR [Concomitant]
     Active Substance: ACYCLOVIR
     Dosage: 1 DOSAGE FORM, TID (AFTER BREAKFAST, LUNCH, AND DINNER ONLY ON MONDAYS, WEDNESDAYS, AND FRIDAY)
     Route: 048
     Dates: start: 20211129
  32. ACYCLOVIR [Concomitant]
     Active Substance: ACYCLOVIR
     Dosage: 1 DOSAGE FORM, TID (AFTER BREAKFAST, LUNCH, AND DINNER ONLY ON MONDAYS, WEDNESDAYS, AND FRIDAYS)
     Route: 048
     Dates: start: 20211214
  33. ACYCLOVIR [Concomitant]
     Active Substance: ACYCLOVIR
     Dosage: 1 DOSAGE FORM, TID (AFTER BREAKFAST, LUNCH, AND DINNER ONLY ON MONDAYS, WEDNESDAYS, AND FRIDAYS)
     Route: 048
     Dates: start: 20211227
  34. ACYCLOVIR [Concomitant]
     Active Substance: ACYCLOVIR
     Dosage: 1 DOSAGE FORM, TID (AFTER BREAKFAST, LUNCH, AND DINNER ONLY ON MONDAYS, WEDNESDAYS, AND FRIDAYS)
     Route: 048
     Dates: start: 20211230
  35. METFORMIN [Concomitant]
     Active Substance: METFORMIN HYDROCHLORIDE
     Indication: Product used for unknown indication
     Dosage: 500 MG (1 TABLET), BID (TBWICE DAILY AFTER BREAKFAST AND DINNER)
     Route: 065
     Dates: start: 20211024
  36. METFORMIN [Concomitant]
     Active Substance: METFORMIN HYDROCHLORIDE
     Dosage: 1 DOSAGE FORM, BID (AFTER BREAKFAST AND DINNER)
     Route: 048
     Dates: start: 20211122
  37. GLIPIZIDE [Concomitant]
     Active Substance: GLIPIZIDE
     Indication: Product used for unknown indication
     Dosage: 5 MG (A HALF OF TABLET), QD (ONCE DAILY BEFORE BREAKFAST 15-30 MIN)
     Route: 048
  38. OMEPRAZOLE [Concomitant]
     Active Substance: OMEPRAZOLE
     Indication: Product used for unknown indication
     Dosage: 20 MG (1 CAPSULE), QD (ONCE DAILY BEFORE BREAKFAST)
     Route: 048
     Dates: start: 20211024
  39. OMEPRAZOLE [Concomitant]
     Active Substance: OMEPRAZOLE
     Dosage: 1 DOSAGE FORM, QD (BEFORE BREAKFAST)
     Route: 048
     Dates: start: 20211122
  40. OMEPRAZOLE [Concomitant]
     Active Substance: OMEPRAZOLE
     Dosage: 1 DOSAGE FORM, QD (BEFORE BREAKFAST)
     Route: 048
     Dates: start: 20211129
  41. OMEPRAZOLE [Concomitant]
     Active Substance: OMEPRAZOLE
     Dosage: 1 DOSAGE FORM, QD (BEFORE BREAKFAST, ABLE TO PEEL OUT OF THE CAPSULE, BUT DO NOT CRUSH)
     Route: 048
     Dates: start: 20211214
  42. OMEPRAZOLE [Concomitant]
     Active Substance: OMEPRAZOLE
     Dosage: 1 DOSAGE FORM, QD (BEFORE BREAKFAST, ABLE TO PEEL OUT OF THE CAPSULE, BUT DO NOT CRUSH)
     Route: 065
     Dates: start: 20211227
  43. OMEPRAZOLE [Concomitant]
     Active Substance: OMEPRAZOLE
     Dosage: 1 DOSAGE FORM, QD (BEFORE BREAKFAST, ABLE TO PEEL OUT OF THE CAPSULE, BUT DO NOT CRUSH)
     Route: 048
     Dates: start: 20211230
  44. FOLIC ACID [Concomitant]
     Active Substance: FOLIC ACID
     Indication: Product used for unknown indication
     Dosage: 5 MG (1 TABLET), QD (ONCE DAILY AFTER BREAKFAST)
     Route: 048
  45. FOLIC ACID [Concomitant]
     Active Substance: FOLIC ACID
     Dosage: 1 DOSAGE FORM, QD (AFTER BREAKFAST)
     Route: 048
     Dates: start: 20211122
  46. FOLIC ACID [Concomitant]
     Active Substance: FOLIC ACID
     Dosage: 1 DOSAGE FORM, QD (AFTER BREAKFAST)
     Route: 048
     Dates: start: 20211129
  47. FOLIC ACID [Concomitant]
     Active Substance: FOLIC ACID
     Dosage: 1 DOSAGE FORM, QD (AFTER BREAKFAST)
     Route: 048
     Dates: start: 20211214
  48. FOLIC ACID [Concomitant]
     Active Substance: FOLIC ACID
     Dosage: 1 DOSAGE FORM, QD (AFTER BREAKFAST)
     Route: 048
     Dates: start: 20211227
  49. FOLIC ACID [Concomitant]
     Active Substance: FOLIC ACID
     Dosage: 1 DOSAGE FORM, QD (AFTER BREAKFAST)
     Route: 048
     Dates: start: 20211230
  50. THYMOGLOBULINE [Concomitant]
     Active Substance: LAPINE T-LYMPHOCYTE IMMUNE GLOBULIN
     Indication: Product used for unknown indication
     Dosage: 168 MG, QD
     Route: 065
     Dates: start: 20210928, end: 20211002
  51. Normaline [Concomitant]
     Indication: Product used for unknown indication
     Route: 042
     Dates: start: 20220927
  52. HYDROCORTISONE [Concomitant]
     Active Substance: HYDROCORTISONE
     Indication: Product used for unknown indication
     Route: 042
     Dates: start: 20220927
  53. CAFEN [Concomitant]
     Indication: Product used for unknown indication
     Route: 042
     Dates: start: 20210927
  54. METHYLPREDNISOLONE [Concomitant]
     Active Substance: METHYLPREDNISOLONE
     Indication: Product used for unknown indication
     Route: 065
     Dates: start: 20210928, end: 20211002
  55. METHYLPREDNISOLONE [Concomitant]
     Active Substance: METHYLPREDNISOLONE
     Route: 065
     Dates: start: 20211003, end: 20211007
  56. BACTRIM [Concomitant]
     Active Substance: SULFAMETHOXAZOLE\TRIMETHOPRIM
     Indication: Product used for unknown indication
     Route: 048
     Dates: start: 20221024
  57. MAGNESIUM HYDROXIDE [Concomitant]
     Active Substance: MAGNESIUM HYDROXIDE
     Indication: Constipation
     Route: 048
     Dates: start: 20211024
  58. GLIPIZIDE [Concomitant]
     Active Substance: GLIPIZIDE
     Indication: Product used for unknown indication
     Dosage: UNK UNK, QD (A HALF OF TABLET ONCE DAILY BEFORE BREAKFAST 15-30 MIN)
     Route: 048
     Dates: start: 20211024
  59. GLIPIZIDE [Concomitant]
     Active Substance: GLIPIZIDE
     Dosage: UNK UNK, QD (A HALF OF TABLET ONCE DAILY BEFORE BREAKFAST 15-30 MIN, BEWARE OF HYPOGLYCEMIA E.G. HUN
     Route: 048
     Dates: start: 20211129
  60. GLIPIZIDE [Concomitant]
     Active Substance: GLIPIZIDE
     Dosage: UNK, QD (A HALF OF TABLET ONCE DAILY BEFORE BREAKFAST 15-30 MIN, BEWARE OF HYPOGLYCEMIA E.G. HUNGRY,
     Route: 048
     Dates: start: 20211214
  61. TOLPERIN [Concomitant]
     Indication: Product used for unknown indication
     Dosage: 1 DOSAGE FORM, TID (AFTER BREAKFAST, LUNCH, AND DINNER )
     Route: 048
     Dates: start: 20211024
  62. CHLORPHENIRAMINE [Concomitant]
     Active Substance: CHLORPHENIRAMINE
     Indication: Product used for unknown indication
     Dosage: 2 DOSAGE FORM, QD (2 AMP) (BEFORE BLOOD TRANSFUSION)
     Route: 065
     Dates: start: 20221022
  63. CHLORPHENIRAMINE [Concomitant]
     Active Substance: CHLORPHENIRAMINE
     Dosage: 1 DOSAGE FORM, QD (1 AMP) (BEFORE BLOOD TRANSFUSION )
     Route: 065
     Dates: start: 20221023
  64. LORAZEPAM [Concomitant]
     Active Substance: LORAZEPAM
     Indication: Insomnia
     Dosage: 1 DOSAGE FORM, QD (AT BEDTIME FOR INSOMNIA)
     Route: 048
     Dates: start: 20211122
  65. LORAZEPAM [Concomitant]
     Active Substance: LORAZEPAM
     Dosage: 1 DOSAGE FORM, QD (AT BEDTIME)
     Route: 048
     Dates: start: 20211129
  66. LORAZEPAM [Concomitant]
     Active Substance: LORAZEPAM
     Route: 065
     Dates: start: 20211214
  67. LORAZEPAM [Concomitant]
     Active Substance: LORAZEPAM
     Route: 048
     Dates: start: 20211227
  68. LORAZEPAM [Concomitant]
     Active Substance: LORAZEPAM
     Route: 048
     Dates: start: 20211230
  69. ORS BICARBONATE [Concomitant]
     Indication: Product used for unknown indication
     Route: 048
     Dates: start: 20211122
  70. ORS BICARBONATE [Concomitant]
     Route: 048
     Dates: start: 20211227
  71. METOCLOPRAMIDE [Concomitant]
     Active Substance: METOCLOPRAMIDE
     Indication: Product used for unknown indication
     Dosage: UNK, Q5H
     Route: 065
     Dates: start: 20211120
  72. COLCHICINE [Concomitant]
     Active Substance: COLCHICINE
     Indication: Product used for unknown indication
     Dosage: 1 DOSAGE FORM, TID (AFTER BREAKFAST, LUNCH, AND DINNER MEDICATION MAKES DIARRHEA)
     Route: 048
     Dates: start: 20211225
  73. COLCHICINE [Concomitant]
     Active Substance: COLCHICINE
     Dosage: 1 DOSAGE FORM, QD (AFTER BREAKFAST, MEDICATION MAKES DIARRHEA)
     Route: 048
     Dates: start: 20211227
  74. COLCHICINE [Concomitant]
     Active Substance: COLCHICINE
     Dosage: 1 DOSAGE FORM, QD (AFTER BREAKFAST, MEDICATION MAKES DIARRHEA)
     Route: 048
     Dates: start: 20211230
  75. Acetar [Concomitant]
     Indication: Product used for unknown indication
     Route: 042
     Dates: start: 20211230

REACTIONS (10)
  - Sepsis [Fatal]
  - Haemoglobin decreased [Recovering/Resolving]
  - Haematocrit decreased [Recovering/Resolving]
  - White blood cell count decreased [Recovering/Resolving]
  - Streptococcal bacteraemia [Recovering/Resolving]
  - Chills [Recovering/Resolving]
  - Pyrexia [Recovering/Resolving]
  - Platelet count decreased [Recovering/Resolving]
  - Weight decreased [Unknown]
  - Incorrect product administration duration [Unknown]
